FAERS Safety Report 9392262 (Version 3)
Quarter: 2015Q4

REPORT INFORMATION
  Report Type: Report from Study
  Country: BR (occurrence: BR)
  Receive Date: 20130710
  Receipt Date: 20151215
  Transmission Date: 20160305
  Serious: Yes (Hospitalization, Other)
  Sender: FDA-Public Use
  Company Number: BR-ROCHE-1244310

PATIENT
  Sex: Female
  Weight: 78 kg

DRUGS (15)
  1. PREDNISONE. [Concomitant]
     Active Substance: PREDNISONE
     Route: 065
     Dates: start: 2007
  2. SERETIDE [Concomitant]
     Active Substance: FLUTICASONE FUROATE\SALMETEROL XINAFOATE
     Dosage: 50/500
     Route: 065
  3. SPIRIVA [Concomitant]
     Active Substance: TIOTROPIUM BROMIDE MONOHYDRATE
  4. ALLEGRA [Concomitant]
     Active Substance: FEXOFENADINE HYDROCHLORIDE
  5. AEROLIN [Concomitant]
     Active Substance: ALBUTEROL
     Route: 065
     Dates: start: 2004
  6. KOIDE D [Concomitant]
  7. DUOVENT [Concomitant]
     Active Substance: FENOTEROL HYDROBROMIDE
  8. PREDNISONE. [Concomitant]
     Active Substance: PREDNISONE
     Route: 065
     Dates: start: 2008
  9. HYDROCHLOROTHIAZIDE. [Concomitant]
     Active Substance: HYDROCHLOROTHIAZIDE
  10. LOSARTAN. [Concomitant]
     Active Substance: LOSARTAN
  11. AEROLIN [Concomitant]
     Active Substance: ALBUTEROL
     Route: 065
     Dates: start: 2007
  12. KOIDE D [Concomitant]
  13. XOLAIR [Suspect]
     Active Substance: OMALIZUMAB
     Indication: SARCOIDOSIS
     Route: 058
     Dates: start: 2008
  14. XOLAIR [Suspect]
     Active Substance: OMALIZUMAB
     Route: 058
  15. APRESOLINE HYDROCHLORIDE [Concomitant]
     Active Substance: HYDRALAZINE HYDROCHLORIDE
     Route: 065
     Dates: start: 2013

REACTIONS (10)
  - Atrioventricular block [Recovered/Resolved]
  - Fatigue [Recovered/Resolved]
  - Hypertension [Recovered/Resolved]
  - Asthma [Unknown]
  - Pulmonary function test abnormal [Unknown]
  - Malaise [Recovered/Resolved]
  - Product use issue [Unknown]
  - Hepatic neoplasm [Recovered/Resolved]
  - Dyspnoea [Recovered/Resolved]
  - Pain in extremity [Recovered/Resolved]

NARRATIVE: CASE EVENT DATE: 2009
